FAERS Safety Report 13729082 (Version 12)
Quarter: 2019Q1

REPORT INFORMATION
  Report Type: Report from Study
  Country: US (occurrence: US)
  Receive Date: 20170707
  Receipt Date: 20190329
  Transmission Date: 20190417
  Serious: Yes (Death, Life-Threatening, Hospitalization)
  Sender: FDA-Public Use
  Company Number: US-CELGENEUS-USA-20170610361

PATIENT
  Age: 55 Year
  Sex: Male
  Weight: 142.6 kg

DRUGS (11)
  1. NORMAL SALINE [Concomitant]
     Active Substance: SODIUM CHLORIDE
     Indication: PRODUCT USED FOR UNKNOWN INDICATION
     Dosage: 3 LITERS
     Route: 041
  2. VIDAZA [Suspect]
     Active Substance: AZACITIDINE
     Dosage: 180 MILLIGRAM
     Route: 058
     Dates: start: 20161109, end: 20161117
  3. OXYGEN. [Concomitant]
     Active Substance: OXYGEN
     Indication: PRODUCT USED FOR UNKNOWN INDICATION
     Dosage: 4 LITERS
     Route: 055
  4. FILGRASTIM [Concomitant]
     Active Substance: FILGRASTIM
     Indication: PRODUCT USED FOR UNKNOWN INDICATION
     Route: 065
  5. ASPIRIN. [Concomitant]
     Active Substance: ASPIRIN
     Indication: PRODUCT USED FOR UNKNOWN INDICATION
     Route: 065
  6. LASIX [Concomitant]
     Active Substance: FUROSEMIDE
     Indication: OEDEMA
     Route: 065
  7. VIDAZA [Suspect]
     Active Substance: AZACITIDINE
     Dosage: 180 MILLIGRAM
     Route: 058
     Dates: start: 20161205, end: 20161211
  8. VIDAZA [Suspect]
     Active Substance: AZACITIDINE
     Indication: MYELODYSPLASTIC SYNDROME
     Dosage: 180 MILLIGRAM
     Route: 058
     Dates: start: 20161010, end: 20161016
  9. PLAVIX [Concomitant]
     Active Substance: CLOPIDOGREL BISULFATE
     Indication: PRODUCT USED FOR UNKNOWN INDICATION
     Route: 065
  10. VIDAZA [Suspect]
     Active Substance: AZACITIDINE
     Dosage: 180 MILLIGRAM
     Route: 058
     Dates: start: 20161215, end: 20161219
  11. VIDAZA [Suspect]
     Active Substance: AZACITIDINE
     Dosage: 180 MILLIGRAM
     Route: 058
     Dates: start: 201612, end: 20161231

REACTIONS (14)
  - Anaemia [Recovered/Resolved]
  - Thrombocytopenia [Recovered/Resolved]
  - Neutropenia [Recovered/Resolved]
  - Anaemia [Recovered/Resolved]
  - Conjunctival haemorrhage [Recovered/Resolved]
  - Metabolic encephalopathy [Recovered/Resolved]
  - Leukopenia [Recovered/Resolved]
  - Neutropenia [Recovered/Resolved]
  - Thrombocytopenia [Recovered/Resolved]
  - Bacteraemia [Recovered/Resolved]
  - Cellulitis [Recovered/Resolved]
  - Septic shock [Fatal]
  - Thrombocytopenia [Recovered/Resolved]
  - Leukopenia [Recovered/Resolved]

NARRATIVE: CASE EVENT DATE: 20161027
